FAERS Safety Report 9305919 (Version 1)
Quarter: 2013Q2

REPORT INFORMATION
  Report Type: Spontaneous
  Country: US (occurrence: US)
  Receive Date: 20130523
  Receipt Date: 20130523
  Transmission Date: 20140414
  Serious: No
  Sender: FDA-Public Use
  Company Number: US-PFIZER INC-2013157225

PATIENT
  Age: 56 Year
  Sex: Male
  Weight: 132 kg

DRUGS (2)
  1. VIAGRA [Suspect]
     Indication: ERECTILE DYSFUNCTION
     Dosage: 100 MG, AS NEEDED
     Route: 048
  2. COLCHICINE [Concomitant]
     Indication: GOUT
     Dosage: UNK

REACTIONS (1)
  - Back disorder [Unknown]
